FAERS Safety Report 10054838 (Version 1)
Quarter: 2014Q2

REPORT INFORMATION
  Report Type: Spontaneous
  Country: CH (occurrence: CH)
  Receive Date: 20140402
  Receipt Date: 20140402
  Transmission Date: 20141212
  Serious: Yes (Other)
  Sender: FDA-Public Use
  Company Number: PHHY2014CH039088

PATIENT
  Age: 66 Year
  Sex: Male

DRUGS (5)
  1. CICLOSPORIN [Suspect]
     Indication: IMMUNOSUPPRESSION
  2. MYCOPHENOLATE [Suspect]
     Indication: IMMUNOSUPPRESSION
  3. BASILIXIMAB [Suspect]
     Indication: IMMUNOSUPPRESSION
  4. ATGAM [Suspect]
     Indication: IMMUNOSUPPRESSION
  5. CORTICOSTEROIDS [Suspect]
     Indication: IMMUNOSUPPRESSION

REACTIONS (3)
  - Transplant failure [Unknown]
  - Hypoglycaemia [Recovered/Resolved]
  - Insulin resistance [Unknown]
